FAERS Safety Report 22638937 (Version 3)
Quarter: 2025Q3

REPORT INFORMATION
  Report Type: Report from Study
  Country: EU (occurrence: EU)
  Receive Date: 20230626
  Receipt Date: 20250708
  Transmission Date: 20251021
  Serious: Yes (Death)
  Sender: CELLTRION
  Company Number: EU-CELLTRION INC.-2023IT009570

PATIENT

DRUGS (27)
  1. BEVACIZUMAB [Suspect]
     Active Substance: BEVACIZUMAB
     Indication: Hepatocellular carcinoma
     Route: 065
     Dates: start: 20230127
  2. BEVACIZUMAB [Suspect]
     Active Substance: BEVACIZUMAB
     Route: 042
     Dates: start: 20230127
  3. ATEZOLIZUMAB [Suspect]
     Active Substance: ATEZOLIZUMAB
     Indication: Hepatocellular carcinoma
     Route: 042
     Dates: start: 20230127
  4. ATEZOLIZUMAB [Suspect]
     Active Substance: ATEZOLIZUMAB
     Route: 041
     Dates: start: 20230127
  5. LACTULOSE [Concomitant]
     Active Substance: LACTULOSE
  6. POTASSIUM CHLORIDE [Concomitant]
     Active Substance: POTASSIUM CHLORIDE
     Dates: start: 20230420
  7. FINASTERIDE [Concomitant]
     Active Substance: FINASTERIDE
  8. TAPENTADOL [Concomitant]
     Active Substance: TAPENTADOL
     Dates: start: 20230124
  9. ACETAMINOPHEN [Concomitant]
     Active Substance: ACETAMINOPHEN
     Dates: start: 20230518
  10. NIFEDIPINE [Concomitant]
     Active Substance: NIFEDIPINE
  11. HEPARIN [Concomitant]
     Active Substance: HEPARIN SODIUM
  12. PANTOPRAZOLE [Concomitant]
     Active Substance: PANTOPRAZOLE
     Dates: start: 20221220
  13. FUROSEMIDE [Concomitant]
     Active Substance: FUROSEMIDE
     Dates: start: 20221220
  14. FUROSEMIDE [Concomitant]
     Active Substance: FUROSEMIDE
     Dates: start: 20221220
  15. FUROSEMIDE [Concomitant]
     Active Substance: FUROSEMIDE
     Dates: start: 20221220
  16. FUROSEMIDE [Concomitant]
     Active Substance: FUROSEMIDE
     Dates: start: 20230330
  17. FUROSEMIDE [Concomitant]
     Active Substance: FUROSEMIDE
     Dates: start: 20221220, end: 20230330
  18. CLOTRIMAZOLE [Concomitant]
     Active Substance: CLOTRIMAZOLE
     Dates: start: 20230420, end: 20230504
  19. TAMSULOSIN [Concomitant]
     Active Substance: TAMSULOSIN
  20. ATENOLOL [Concomitant]
     Active Substance: ATENOLOL
     Route: 065
  21. CETIRIZINE [Concomitant]
     Active Substance: CETIRIZINE HYDROCHLORIDE
     Dates: start: 20230310
  22. CHOLESTYRAMINE [Concomitant]
     Active Substance: CHOLESTYRAMINE
     Dates: start: 20230330
  23. PREDNISONE [Concomitant]
     Active Substance: PREDNISONE
     Dates: start: 20230310
  24. SORAFENIB [Concomitant]
     Active Substance: SORAFENIB
     Dates: start: 20230504
  25. SORAFENIB [Concomitant]
     Active Substance: SORAFENIB
     Dates: start: 20230522, end: 20230529
  26. LINEZOLID [Concomitant]
     Active Substance: LINEZOLID
     Dates: start: 20230511, end: 20230521
  27. IBUPROFEN [Concomitant]
     Active Substance: IBUPROFEN
     Dates: start: 20230518, end: 20230605

REACTIONS (5)
  - Death [Fatal]
  - Pruritus [Recovered/Resolved]
  - Oedema [Recovered/Resolved]
  - Erythema [Recovered/Resolved]
  - Intentional product use issue [Unknown]

NARRATIVE: CASE EVENT DATE: 20230301
